FAERS Safety Report 4865649-0 (Version None)
Quarter: 2005Q4

REPORT INFORMATION
  Report Type: 
  Country: None (occurrence: None)
  Receive Date: 20051220
  Receipt Date: 20051212
  Transmission Date: 20060501
  Serious: Yes (Hospitalization, Other)
  Sender: FDA-Public Use
  Company Number: 2005161102

PATIENT
  Age: 73 Year
  Sex: Female
  Weight: 64.4108 kg

DRUGS (9)
  1. LIPITOR [Suspect]
     Indication: BLOOD CHOLESTEROL INCREASED
     Dosage: 10 MG (10  MG, 1 IN 1 D)
  2. PROCARDIA [Suspect]
     Indication: HYPERTENSION
     Dosage: 60 MG (30 MG, 2 IN 1 D), ORAL
     Route: 048
     Dates: start: 20050101
  3. ALL OTHER THERAPEUTIC PRODUCTS [Suspect]
     Indication: ILL-DEFINED DISORDER
  4. ............................. [Concomitant]
     Dosage: ...................
  5. IBUPROFEN [Concomitant]
  6. FOLIC ACID [Concomitant]
  7. TUMS (CALCIUM CARBONATE) [Concomitant]
  8. MIRALAX [Concomitant]
  9. METHOTREXATE [Concomitant]

REACTIONS (7)
  - BLOOD CHOLESTEROL INCREASED [None]
  - DYSPHAGIA [None]
  - HYPERTENSION [None]
  - JOINT INJURY [None]
  - KNEE OPERATION [None]
  - POST PROCEDURAL NAUSEA [None]
  - WEIGHT DECREASED [None]
